FAERS Safety Report 6241917-5 (Version None)
Quarter: 2009Q2

REPORT INFORMATION
  Report Type: 
  Country: None (occurrence: None)
  Receive Date: 20090623
  Receipt Date: 20090615
  Transmission Date: 20091009
  Serious: Yes (Other)
  Sender: FDA-Public Use
  Company Number: US-GENENTECH-285180

PATIENT
  Age: 70 Year
  Sex: Female

DRUGS (2)
  1. AVASTIN [Suspect]
     Indication: OVARIAN CANCER
     Dosage: UNK
     Route: 042
     Dates: start: 20070901
  2. ERLOTINIB [Suspect]
     Indication: OVARIAN CANCER
     Dosage: UNK
     Route: 048
     Dates: start: 20070901

REACTIONS (1)
  - MENISCUS LESION [None]
